FAERS Safety Report 23428561 (Version 1)
Quarter: 2024Q1

REPORT INFORMATION
  Report Type: Report from Study
  Country: ZA (occurrence: ZA)
  Receive Date: 20240122
  Receipt Date: 20240122
  Transmission Date: 20240410
  Serious: Yes (Hospitalization)
  Sender: FDA-Public Use
  Company Number: ZA-AstraZeneca-2024A012373

PATIENT
  Age: 14 Month
  Sex: Female
  Weight: 10.8 kg

DRUGS (1)
  1. SYNAGIS [Suspect]
     Active Substance: PALIVIZUMAB
     Indication: Antiviral prophylaxis
     Route: 030

REACTIONS (1)
  - Respiratory disorder [Unknown]
